FAERS Safety Report 19621027 (Version 2)
Quarter: 2024Q1

REPORT INFORMATION
  Report Type: Spontaneous
  Country: JP (occurrence: JP)
  Receive Date: 20210728
  Receipt Date: 20240112
  Transmission Date: 20240410
  Serious: Yes (Hospitalization, Other)
  Sender: FDA-Public Use
  Company Number: JP-TAKEDA-2021TJP048871AA

PATIENT

DRUGS (6)
  1. ZEJULA [Suspect]
     Active Substance: NIRAPARIB
     Indication: Fallopian tube cancer
     Dosage: 200 MG, QD(200 MILLIGRAM, QD)
     Route: 048
     Dates: start: 20210610, end: 20210629
  2. ZEJULA [Suspect]
     Active Substance: NIRAPARIB
     Dosage: 100 MG, QD(100 MILLIGRAM, QD)
     Route: 048
     Dates: start: 20210714, end: 20210803
  3. ZEJULA [Suspect]
     Active Substance: NIRAPARIB
     Dosage: 100 MG, QD(100 MILLIGRAM, QD)
     Route: 048
     Dates: start: 20210818, end: 20210907
  4. MAGNESIUM OXIDE [Concomitant]
     Active Substance: MAGNESIUM OXIDE
     Indication: Product used for unknown indication
     Dosage: 500 MG(500 MILLIGRAM)
     Route: 048
     Dates: start: 2016, end: 2023
  5. PREGABALIN [Concomitant]
     Active Substance: PREGABALIN
     Indication: Product used for unknown indication
     Dosage: 75 MG, QD(75 MILLIGRAM, QD)
     Route: 048
     Dates: start: 2019, end: 2023
  6. METHYLCOBALAMIN [Concomitant]
     Active Substance: METHYLCOBALAMIN
     Indication: Product used for unknown indication
     Dosage: 500 ?G, TID(500 MICROGRAM, TID)
     Route: 048
     Dates: start: 202103, end: 202107

REACTIONS (10)
  - Stoma site haemorrhage [Recovering/Resolving]
  - Anaemia [Recovered/Resolved]
  - Platelet count decreased [Recovered/Resolved]
  - White blood cell count decreased [Unknown]
  - Hepatic function abnormal [Unknown]
  - Pyrexia [Recovered/Resolved]
  - Carbohydrate antigen 125 increased [Unknown]
  - Neutrophil count decreased [Recovered/Resolved]
  - Malaise [Unknown]
  - Vomiting [Unknown]

NARRATIVE: CASE EVENT DATE: 20210629
